FAERS Safety Report 4466024-3 (Version None)
Quarter: 2004Q3

REPORT INFORMATION
  Report Type: 
  Country: None (occurrence: None)
  Receive Date: 20040930
  Receipt Date: 20040917
  Transmission Date: 20050211
  Serious: Yes (Hospitalization)
  Sender: FDA-Public Use
  Company Number: 2004SE05182

PATIENT
  Age: 84 Year
  Sex: Female

DRUGS (5)
  1. BLOPRESS [Suspect]
     Indication: HYPERTENSION
     Dosage: 1 DF QD PO
     Route: 048
     Dates: end: 20040617
  2. TOREM [Suspect]
     Dosage: 10 MG QD ORAL
     Route: 048
     Dates: end: 20040617
  3. ALDACTONE [Suspect]
     Dosage: 50 MG DAILY
  4. CORDARONE [Concomitant]
  5. ASPIRIN [Concomitant]

REACTIONS (8)
  - BRADYCARDIA [None]
  - CARDIAC FAILURE [None]
  - CHEST PAIN [None]
  - DRUG INTERACTION [None]
  - DYSPNOEA [None]
  - HYPERKALAEMIA [None]
  - PARAESTHESIA [None]
  - RENAL FAILURE CHRONIC [None]
